FAERS Safety Report 4518670-6 (Version None)
Quarter: 2004Q4

REPORT INFORMATION
  Report Type: 
  Country: None (occurrence: None)
  Receive Date: 20041029
  Receipt Date: 20040923
  Transmission Date: 20050328
  Serious: Yes (Other)
  Sender: FDA-Public Use
  Company Number: 200417233US

PATIENT
  Age: 45 Year
  Sex: Female

DRUGS (3)
  1. KETEK [Suspect]
  2. VENLAFAXINE (EFFEXOR XR) [Concomitant]
  3. SIMVASTATIN [Concomitant]

REACTIONS (5)
  - DIPLOPIA [None]
  - DIZZINESS [None]
  - VISION BLURRED [None]
  - VISUAL ACUITY REDUCED [None]
  - VISUAL DISTURBANCE [None]
